FAERS Safety Report 12945692 (Version 1)
Quarter: 2016Q4

REPORT INFORMATION
  Report Type: Report from Study
  Country: CA (occurrence: CA)
  Receive Date: 20161116
  Receipt Date: 20161116
  Transmission Date: 20170207
  Serious: Yes (Hospitalization)
  Sender: FDA-Public Use
  Company Number: CA-AMGEN-CANSL2015073381

PATIENT
  Age: 81 Year
  Sex: Female

DRUGS (3)
  1. ASPRIN [Concomitant]
     Active Substance: ASPIRIN
     Dosage: 80 MG, QD (EVERY MORNING)
  2. VITAMIN D [Concomitant]
     Active Substance: CHOLECALCIFEROL
     Dosage: UNK UNK, QD (EVERY NOON)
  3. PROLIA [Suspect]
     Active Substance: DENOSUMAB
     Indication: OSTEOPOROSIS POSTMENOPAUSAL
     Dosage: 60 MG/ML, UNK
     Route: 065
     Dates: start: 20120801, end: 201506

REACTIONS (7)
  - Pain in jaw [Unknown]
  - Inflammation [Unknown]
  - Infective glossitis [Recovered/Resolved]
  - Gingivitis [Recovered/Resolved]
  - Gingival pain [Unknown]
  - Toothache [Unknown]
  - Abdominal discomfort [Unknown]

NARRATIVE: CASE EVENT DATE: 201506
